FAERS Safety Report 24813778 (Version 1)
Quarter: 2025Q1

REPORT INFORMATION
  Report Type: Report from Study
  Country: US (occurrence: US)
  Receive Date: 20250107
  Receipt Date: 20250107
  Transmission Date: 20250409
  Serious: No
  Sender: ACADIA PHARMACEUTICALS
  Company Number: US-ACADIA PHARMACEUTICALS INC.-ACA-2025-PIM-000122

PATIENT
  Sex: Male

DRUGS (1)
  1. NUPLAZID [Suspect]
     Active Substance: PIMAVANSERIN TARTRATE
     Indication: Chronic fatigue syndrome
     Dosage: HALF CAPSULE OF NUPLAZID 34 MG ONCE DAILY
     Route: 048

REACTIONS (2)
  - Prescribed underdose [Unknown]
  - Off label use [Unknown]
